FAERS Safety Report 6241482-2 (Version None)
Quarter: 2009Q2

REPORT INFORMATION
  Report Type: 
  Country: None (occurrence: None)
  Receive Date: 20090623
  Receipt Date: 20090615
  Transmission Date: 20091009
  Serious: No
  Sender: FDA-Public Use
  Company Number: BR-ROCHE-588134

PATIENT
  Sex: Female
  Weight: 2.6 kg

DRUGS (1)
  1. ROACUTAN [Suspect]
     Indication: ACNE
     Route: 064
     Dates: start: 20070901, end: 20080315

REACTIONS (2)
  - NORMAL NEWBORN [None]
  - PREMATURE LABOUR [None]
